FAERS Safety Report 14170533 (Version 5)
Quarter: 2017Q4

REPORT INFORMATION
  Report Type: Report from Study
  Country: CH (occurrence: CH)
  Receive Date: 20171108
  Receipt Date: 20171212
  Transmission Date: 20180321
  Serious: Yes (Death, Hospitalization)
  Sender: FDA-Public Use
  Company Number: CH-AMGEN-CHECT2017159379

PATIENT
  Age: 58 Year
  Sex: Male
  Weight: 74.5 kg

DRUGS (10)
  1. GLUCOPHAGE [Concomitant]
     Active Substance: METFORMIN HYDROCHLORIDE
     Dosage: 1000 MG, UNK
     Route: 048
     Dates: start: 2002, end: 20171019
  2. DAFALGAN [Concomitant]
     Active Substance: ACETAMINOPHEN
     Dosage: 1000 MG, UNK
     Route: 048
     Dates: start: 20170921, end: 20171019
  3. TALIMOGENE LAHERPAREPVEC [Suspect]
     Active Substance: TALIMOGENE LAHERPAREPVEC
     Indication: HEPATIC NEOPLASM
     Dosage: 5 ML, UNK
     Route: 025
     Dates: start: 20170921, end: 20171010
  4. OXYCODONE [Concomitant]
     Active Substance: OXYCODONE
     Dosage: 20- 30 MG, UNK
     Route: 048
     Dates: start: 20170919, end: 20171018
  5. PURSANA [Concomitant]
     Active Substance: FIG FRUIT OIL\SORBITOL
     Dosage: 30 ML, UNK AND 15 MG, UNK
     Route: 048
     Dates: start: 20171005, end: 20171102
  6. TENORMIN [Concomitant]
     Active Substance: ATENOLOL
     Dosage: 50 MG, UNK
     Route: 048
     Dates: start: 2002, end: 20171102
  7. OXYNORM [Concomitant]
     Active Substance: OXYCODONE HYDROCHLORIDE
     Dosage: 10 MG, UNK
     Route: 048
     Dates: start: 20171005, end: 20171018
  8. INSULIN [Concomitant]
     Active Substance: INSULIN NOS
     Dosage: 20 IU, UNK, 10 UNK, UNK
     Route: 058
     Dates: start: 2002, end: 20171102
  9. XARELTO [Concomitant]
     Active Substance: RIVAROXABAN
     Dosage: 10- 20 MG, UNK
     Route: 048
     Dates: start: 2014, end: 20171102
  10. LAXOBERON [Concomitant]
     Active Substance: SODIUM PICOSULFATE
     Dosage: 5-10 MG, UNK
     Route: 048
     Dates: start: 20171005, end: 20171102

REACTIONS (2)
  - Neoplasm progression [Fatal]
  - Abdominal pain [Not Recovered/Not Resolved]

NARRATIVE: CASE EVENT DATE: 20171019
